FAERS Safety Report 6439625-0 (Version None)
Quarter: 2009Q4

REPORT INFORMATION
  Report Type: 
  Country: None (occurrence: None)
  Receive Date: 20091113
  Receipt Date: 20091105
  Transmission Date: 20100525
  Serious: Yes (Hospitalization)
  Sender: FDA-Public Use
  Company Number: CH-JNJFOC-20091101407

PATIENT
  Age: 50 Year
  Sex: Female

DRUGS (6)
  1. RISPERDAL CONSTA [Suspect]
     Indication: MENTAL DISORDER
     Route: 030
  2. MOTILIUM [Suspect]
     Indication: VOMITING
     Route: 048
  3. PANADOL [Suspect]
     Indication: HEADACHE
     Route: 048
     Dates: start: 20091018, end: 20091021
  4. ALCOHOL [Suspect]
     Indication: DRUG USE FOR UNKNOWN INDICATION
     Route: 048
     Dates: start: 20091004, end: 20091018
  5. DAFALGAN [Suspect]
     Indication: HEADACHE
     Route: 048
     Dates: start: 20091018, end: 20091021
  6. LORAZEPAM [Concomitant]
     Route: 048

REACTIONS (5)
  - ENTERITIS [None]
  - HEADACHE [None]
  - HEPATOCELLULAR INJURY [None]
  - NAUSEA [None]
  - VOMITING [None]
